FAERS Safety Report 4806620-4 (Version None)
Quarter: 2005Q4

REPORT INFORMATION
  Report Type: 
  Country: None (occurrence: None)
  Receive Date: 20051019
  Receipt Date: 20051007
  Transmission Date: 20060501
  Serious: Yes (Death)
  Sender: FDA-Public Use
  Company Number: S05-USA-04577-01

PATIENT
  Age: 32 Year
  Sex: Male

DRUGS (2)
  1. LEXAPRO [Suspect]
     Indication: ANXIETY
     Dosage: 10 MG PO
     Route: 048
     Dates: start: 20030930, end: 20031009
  2. LEXAPRO [Suspect]
     Indication: DEPRESSION
     Dosage: 10 MG PO
     Route: 048
     Dates: start: 20030930, end: 20031009

REACTIONS (13)
  - ANXIETY [None]
  - COMPLETED SUICIDE [None]
  - DIARRHOEA [None]
  - FATIGUE [None]
  - FEELING ABNORMAL [None]
  - INTENTIONAL SELF-INJURY [None]
  - NAUSEA [None]
  - OVERDOSE [None]
  - RESTLESSNESS [None]
  - SOCIAL AVOIDANT BEHAVIOUR [None]
  - THINKING ABNORMAL [None]
  - TREMOR [None]
  - VOMITING [None]
